FAERS Safety Report 25566521 (Version 1)
Quarter: 2025Q3

REPORT INFORMATION
  Report Type: Spontaneous
  Country: US (occurrence: None)
  Receive Date: 20250714
  Receipt Date: 20250714
  Transmission Date: 20251020
  Serious: Yes (Disabling, Other)
  Sender: FDA-CTU
  Company Number: None

PATIENT
  Age: 73 Year
  Sex: Female
  Weight: 49.9 kg

DRUGS (14)
  1. IBSRELA [Suspect]
     Active Substance: TENAPANOR HYDROCHLORIDE
     Dosage: 2 DAILY  3 ...   60 TABS TWICE DAILY MOUTH
     Route: 048
     Dates: start: 20250117, end: 20250118
  2. AMITIZA [Suspect]
     Active Substance: LUBIPROSTONE
  3. TRULANCE [Suspect]
     Active Substance: PLECANATIDE
  4. LINZESS [Suspect]
     Active Substance: LINACLOTIDE
  5. VALSARTAN [Concomitant]
     Active Substance: VALSARTAN
  6. WELLBUTRIN [Concomitant]
     Active Substance: BUPROPION HYDROCHLORIDE
  7. ASPIRIN [Concomitant]
     Active Substance: ASPIRIN
  8. LEVOTHYROXINE [Concomitant]
     Active Substance: LEVOTHYROXINE
  9. FLONASE [Concomitant]
     Active Substance: FLUTICASONE PROPIONATE
  10. ZYRTEC [Concomitant]
     Active Substance: CETIRIZINE HYDROCHLORIDE
  11. ESTYLENOL [Concomitant]
  12. ALIGN [Concomitant]
     Active Substance: BIFIDOBACTERIUM LONGUM SUBSP. INFANTIS
  13. CHROMPIC VITAMINS [Concomitant]
  14. WOMANS CENTRUN SILVER [Concomitant]

REACTIONS (6)
  - Diarrhoea [None]
  - Dehydration [None]
  - Feeling abnormal [None]
  - Illness [None]
  - Illness [None]
  - Surgery [None]

NARRATIVE: CASE EVENT DATE: 20250618
